FAERS Safety Report 6631344-0 (Version None)
Quarter: 2010Q1

REPORT INFORMATION
  Report Type: 
  Country: None (occurrence: None)
  Receive Date: 20100311
  Receipt Date: 20100311
  Transmission Date: 20100710
  Serious: Yes (Hospitalization)
  Sender: FDA-Public Use
  Company Number: None

PATIENT
  Sex: Male
  Weight: 38.6 kg

DRUGS (24)
  1. CYTARABINE [Suspect]
     Dosage: 54640 MG
  2. DAUNORUBICIN HCL [Suspect]
     Dosage: 330 MG
  3. ETOPOSIDE [Suspect]
     Dosage: 2000 MG
  4. L-ASPARAGINASE [Suspect]
     Dosage: 1440 IU
  5. MITOXANTRONE HYDROCHLORIDE [Suspect]
     Dosage: 56 MG
  6. BENADRYL [Concomitant]
  7. DIFLUCAN [Concomitant]
  8. FLAGYL [Concomitant]
  9. FORTAZ [Concomitant]
  10. KYTRIL [Concomitant]
  11. LANOXIN [Concomitant]
  12. LASIX [Concomitant]
  13. LEVSIN [Concomitant]
  14. MAGIC MOUTH WASH [Concomitant]
  15. MEGACE [Concomitant]
  16. PERIDEX [Concomitant]
  17. PHENERGAN HCL [Concomitant]
  18. PREVACID [Concomitant]
  19. VASOTEC [Concomitant]
  20. CALCIUM CARBINATE [Concomitant]
  21. MORPHINE [Concomitant]
  22. MULTI-VITAMIN [Concomitant]
  23. TYLENOL-500 [Concomitant]
  24. VANCOMYCIN [Concomitant]

REACTIONS (29)
  - ADENOVIRUS INFECTION [None]
  - BACTERIAL TEST POSITIVE [None]
  - BLOOD CALCIUM DECREASED [None]
  - BLOOD SODIUM DECREASED [None]
  - BRAIN NATRIURETIC PEPTIDE INCREASED [None]
  - CLOSTRIDIUM TEST POSITIVE [None]
  - DILATATION VENTRICULAR [None]
  - DISORIENTATION [None]
  - ELECTROCARDIOGRAM QT PROLONGED [None]
  - GALLOP RHYTHM PRESENT [None]
  - GASTROINTESTINAL DISORDER [None]
  - GENERAL PHYSICAL HEALTH DETERIORATION [None]
  - HAEMODYNAMIC INSTABILITY [None]
  - HEART RATE DECREASED [None]
  - HEART RATE INCREASED [None]
  - HEPATIC STEATOSIS [None]
  - LEFT ATRIAL DILATATION [None]
  - LEFT VENTRICULAR DYSFUNCTION [None]
  - MYOCARDIAL DEPRESSION [None]
  - NO THERAPEUTIC RESPONSE [None]
  - OEDEMA PERIPHERAL [None]
  - PLATELET COUNT DECREASED [None]
  - PLEURAL EFFUSION [None]
  - PULSE PRESSURE DECREASED [None]
  - RESPIRATORY FAILURE [None]
  - RESPIRATORY RATE INCREASED [None]
  - SEPTIC SHOCK [None]
  - SINUS TACHYCARDIA [None]
  - TROPONIN I INCREASED [None]
